FAERS Safety Report 9762285 (Version 1)
Quarter: 2013Q4

REPORT INFORMATION
  Report Type: Spontaneous
  Country: US (occurrence: US)
  Receive Date: 20131216
  Receipt Date: 20131216
  Transmission Date: 20140711
  Serious: No
  Sender: FDA-Public Use
  Company Number: US-BIOGENIDEC-2013BI108603

PATIENT
  Age: 47 Year
  Sex: Female

DRUGS (10)
  1. TECFIDERA [Suspect]
     Indication: MULTIPLE SCLEROSIS
     Route: 048
     Dates: start: 20131022
  2. TECFIDERA [Suspect]
     Indication: MULTIPLE SCLEROSIS
     Route: 048
     Dates: start: 20131029
  3. AMLODIPINE BESYLATE [Concomitant]
  4. AMLODIPINE BESYLATE [Concomitant]
  5. FLEXERIL [Concomitant]
  6. MORPHINE SULFATE [Concomitant]
  7. NEXIUM [Concomitant]
  8. PROMETHAZINE HCL [Concomitant]
  9. PROZAC [Concomitant]
  10. TRAMADOL HCL ER [Concomitant]

REACTIONS (1)
  - Flushing [Unknown]
